FAERS Safety Report 20393340 (Version 2)
Quarter: 2022Q1

REPORT INFORMATION
  Report Type: Spontaneous
  Country: LU (occurrence: LU)
  Receive Date: 20220128
  Receipt Date: 20220131
  Transmission Date: 20220424
  Serious: Yes (Hospitalization)
  Sender: FDA-Public Use
  Company Number: None

PATIENT
  Age: 42 Year
  Sex: Female
  Weight: 46 kg

DRUGS (2)
  1. PACLITAXEL [Suspect]
     Active Substance: PACLITAXEL
     Indication: Breast cancer
     Dosage: 7TH CYCLE OF CHEMOTHERAPY, UNIT DOSE 114.12 MG
     Route: 041
  2. DOXORUBICIN [Suspect]
     Active Substance: DOXORUBICIN
     Indication: Breast cancer
     Dosage: 7TH CYCLE OF CHEMOTHERAPY, NON - PEGYLATED LIPOSOMAL DOXORUBICIN (MYOCET), UNIT DOSE 28.34MG
     Route: 041
     Dates: end: 20220106

REACTIONS (3)
  - Chest pain [Recovering/Resolving]
  - Back pain [Recovering/Resolving]
  - Infusion related reaction [Recovering/Resolving]

NARRATIVE: CASE EVENT DATE: 20210106
